FAERS Safety Report 14453153 (Version 2)
Quarter: 2018Q1

REPORT INFORMATION
  Report Type: Report from Study
  Country: FR (occurrence: FR)
  Receive Date: 20180129
  Receipt Date: 20180322
  Transmission Date: 20180509
  Serious: Yes (Hospitalization)
  Sender: FDA-Public Use
  Company Number: FR-VELOXIS PHARMACEUTICALS-2040953

PATIENT
  Age: 73 Year
  Sex: Male
  Weight: 90 kg

DRUGS (26)
  1. PROGRAF [Concomitant]
     Active Substance: TACROLIMUS\TACROLIMUS ANHYDROUS
     Dates: start: 20170902, end: 20170912
  2. PROGRAF [Concomitant]
     Active Substance: TACROLIMUS\TACROLIMUS ANHYDROUS
     Dates: start: 20170913, end: 20171006
  3. CORTANCYL [Concomitant]
     Active Substance: PREDNISONE
     Dates: start: 20170830
  4. SERETIDE [Concomitant]
     Active Substance: FLUTICASONE PROPIONATE\SALMETEROL XINAFOATE
     Dates: start: 20170902
  5. ENVARSUS XR [Suspect]
     Active Substance: TACROLIMUS
     Indication: PROPHYLAXIS AGAINST TRANSPLANT REJECTION
     Dates: start: 20171202
  6. ARANESP [Concomitant]
     Active Substance: DARBEPOETIN ALFA
     Dates: start: 20180104
  7. PROGRAF [Concomitant]
     Active Substance: TACROLIMUS\TACROLIMUS ANHYDROUS
     Dates: start: 20170828, end: 20170829
  8. PROGRAF [Concomitant]
     Active Substance: TACROLIMUS\TACROLIMUS ANHYDROUS
     Dates: start: 20170830, end: 20170830
  9. PROGRAF [Concomitant]
     Active Substance: TACROLIMUS\TACROLIMUS ANHYDROUS
  10. ARANESP [Concomitant]
     Active Substance: DARBEPOETIN ALFA
     Dates: start: 20171007, end: 20180103
  11. MYFORTIC [Concomitant]
     Active Substance: MYCOPHENOLATE SODIUM
     Dates: start: 20180103
  12. CELLCEPT [Concomitant]
     Active Substance: MYCOPHENOLATE MOFETIL\MYCOPHENOLATE MOFETIL HYDROCHLORIDE
     Dates: start: 20170827
  13. SINTROM [Concomitant]
     Active Substance: ACENOCOUMAROL
     Dates: start: 20171031
  14. ROVALCYTE [Concomitant]
     Active Substance: VALGANCICLOVIR HYDROCHLORIDE
     Dates: start: 20170830
  15. TIORFAN [Concomitant]
     Active Substance: RACECADOTRIL
     Dates: start: 20171202, end: 20180103
  16. FUROSEMIDE. [Concomitant]
     Active Substance: FUROSEMIDE
     Dates: start: 20170905
  17. PROGRAF [Concomitant]
     Active Substance: TACROLIMUS\TACROLIMUS ANHYDROUS
     Dates: start: 20170831, end: 20170901
  18. PROGRAF [Concomitant]
     Active Substance: TACROLIMUS\TACROLIMUS ANHYDROUS
     Dates: start: 20171007, end: 20171030
  19. XATRAL [Concomitant]
     Active Substance: ALFUZOSIN
     Dates: start: 20170828
  20. FINASTERIDE. [Concomitant]
     Active Substance: FINASTERIDE
     Dates: start: 20170831
  21. SULFAMETHOXAZOLE AND TRIMETHOPRIM [Concomitant]
     Active Substance: SULFAMETHOXAZOLE\TRIMETHOPRIM
     Dates: start: 20170830
  22. NEBIVOLOL. [Concomitant]
     Active Substance: NEBIVOLOL
     Dates: start: 20170827
  23. LANTUS [Concomitant]
     Active Substance: INSULIN GLARGINE
     Dates: start: 20171007
  24. NOVORAPID [Concomitant]
     Active Substance: INSULIN ASPART
     Dates: start: 20171007
  25. EUPANTOL [Concomitant]
     Active Substance: PANTOPRAZOLE SODIUM
     Dates: start: 20171031
  26. UVEDOSE [Concomitant]
     Active Substance: CHOLECALCIFEROL
     Dates: start: 20170906

REACTIONS (3)
  - Constipation [Recovered/Resolved]
  - Headache [Not Recovered/Not Resolved]
  - Nightmare [Not Recovered/Not Resolved]

NARRATIVE: CASE EVENT DATE: 20171216
